FAERS Safety Report 5220714-3 (Version None)
Quarter: 2007Q1

REPORT INFORMATION
  Report Type: 
  Country: None (occurrence: None)
  Receive Date: 20070125
  Receipt Date: 20070125
  Transmission Date: 20070707
  Serious: Yes (Hospitalization)
  Sender: FDA-Public Use
  Company Number: None

PATIENT
  Sex: Male
  Weight: 79.3795 kg

DRUGS (7)
  1. COUMADIN [Suspect]
     Indication: TRANSIENT ISCHAEMIC ATTACK
     Dosage: PO
     Route: 048
  2. LOPRESSOR [Concomitant]
  3. PLAVIX [Concomitant]
  4. ALBUTEROL [Concomitant]
  5. FLOMAX [Concomitant]
  6. ZOLOFT [Concomitant]
  7. LISINOPRIL [Concomitant]

REACTIONS (6)
  - COAGULOPATHY [None]
  - ECCHYMOSIS [None]
  - INTERNATIONAL NORMALISED RATIO INCREASED [None]
  - OEDEMA PERIPHERAL [None]
  - PROTHROMBIN TIME PROLONGED [None]
  - REFUSAL OF TREATMENT BY PATIENT [None]
